FAERS Safety Report 7003886-X (Version None)
Quarter: 2010Q3

REPORT INFORMATION
  Report Type: 
  Country: None (occurrence: None)
  Receive Date: 20100917
  Receipt Date: 20100908
  Transmission Date: 20110219
  Serious: Yes (Hospitalization, Other)
  Sender: FDA-Public Use
  Company Number: AXC-2010-000239

PATIENT
  Age: 69 Year
  Sex: Male

DRUGS (9)
  1. SUCRALFATE [Suspect]
     Indication: PRODUCT USED FOR UNKNOWN INDICATION
     Dosage: INTRAGASTRIC
  2. OSMOLITE (CARBOHYDRATES NOS, FATTY ACIDS NOS, MINERALS NOS, PROTEINS N [Concomitant]
  3. RANITIDINE [Concomitant]
  4. METOCLOPRAMIDE [Concomitant]
  5. NIFEDIPINE [Concomitant]
  6. CLONIDINE [Concomitant]
  7. ALUMINUM HYDROXIDE TAB [Concomitant]
  8. DOCUSATE SODIUM (DOCUSATE SODIUM) [Concomitant]
  9. METOPROLOL SUCCINATE [Concomitant]

REACTIONS (2)
  - BEZOAR [None]
  - ILEUS [None]
